FAERS Safety Report 5004255-4 (Version None)
Quarter: 2006Q2

REPORT INFORMATION
  Report Type: 
  Country: None (occurrence: None)
  Receive Date: 20060517
  Receipt Date: 20051027
  Transmission Date: 20061013
  Serious: Yes (Hospitalization, Disabling, Other)
  Sender: FDA-Public Use
  Company Number: US-MERCK-0510USA09403

PATIENT
  Age: 47 Year
  Sex: Male
  Weight: 105 kg

DRUGS (1)
  1. VIOXX [Suspect]
     Indication: OSTEOARTHRITIS
     Route: 048
     Dates: start: 20010401

REACTIONS (10)
  - CARDIAC DISORDER [None]
  - CARDIAC MURMUR [None]
  - COUGH [None]
  - DEEP VEIN THROMBOSIS [None]
  - DYSPNOEA [None]
  - HYPERTENSION [None]
  - PALPITATIONS [None]
  - PULMONARY EMBOLISM [None]
  - TENDON RUPTURE [None]
  - THROMBOPHLEBITIS [None]
